FAERS Safety Report 7170673-1 (Version None)
Quarter: 2010Q4

REPORT INFORMATION
  Report Type: 
  Country: None (occurrence: None)
  Receive Date: 20101217
  Receipt Date: 20101206
  Transmission Date: 20110411
  Serious: Yes (Death, Other)
  Sender: FDA-Public Use
  Company Number: FR-ELI_LILLY_AND_COMPANY-FR201012001311

PATIENT
  Sex: Male

DRUGS (3)
  1. PROZAC [Suspect]
     Dosage: 20 MG, DAILY (1/D)
     Route: 048
     Dates: start: 20010101, end: 20010101
  2. CHEMOTHERAPEUTICS [Concomitant]
  3. ISONIAZID [Concomitant]

REACTIONS (1)
  - LIVER TRANSPLANT [None]
